FAERS Safety Report 8588887-2 (Version None)
Quarter: 2012Q3

REPORT INFORMATION
  Report Type: 
  Country: None (occurrence: None)
  Receive Date: 20120813
  Receipt Date: 20120803
  Transmission Date: 20120928
  Serious: Yes (Hospitalization)
  Sender: FDA-Public Use
  Company Number: JP-PFIZER INC-2012165570

PATIENT
  Age: 20 Year
  Sex: Male
  Weight: 75 kg

DRUGS (10)
  1. LEVOFLOXACIN [Suspect]
     Indication: URINARY TRACT INFECTION
     Dosage: 500 MG, 1X/DAY
     Route: 048
     Dates: start: 20120703, end: 20120708
  2. LYRICA [Suspect]
     Indication: HYPOAESTHESIA
     Dosage: 75 MG, DAILY
     Route: 048
     Dates: start: 20120621, end: 20120710
  3. LEVOFLOXACIN [Suspect]
     Indication: BRONCHITIS
     Dosage: 500 MG, 1X/DAY
     Route: 048
     Dates: start: 20120619, end: 20120623
  4. LOXONIN [Concomitant]
     Indication: ANALGESIC THERAPY
     Dosage: 60 MG, 3X/DAY
     Route: 048
     Dates: start: 20120611, end: 20120712
  5. REBAMIPIDE [Concomitant]
     Indication: PROPHYLAXIS AGAINST GASTROINTESTINAL ULCER
     Dosage: 100 MG, 3X/DAY
     Route: 048
     Dates: start: 20120611, end: 20120712
  6. BISOLVON [Concomitant]
     Indication: PRODUCTIVE COUGH
     Dosage: 4 MG, 3X/DAY
     Route: 048
     Dates: start: 20120611, end: 20120712
  7. AMOXICILLIN [Concomitant]
     Indication: BRONCHITIS
     Dosage: 250 MG, 3X/DAY
     Route: 048
     Dates: start: 20120614, end: 20120619
  8. LYRICA [Suspect]
     Indication: NEURALGIA
  9. FAMOTIDINE [Concomitant]
     Indication: PROPHYLAXIS AGAINST GASTROINTESTINAL ULCER
     Dosage: 10 MG, 2X/DAY
     Route: 048
     Dates: start: 20120611, end: 20120712
  10. CEFAZOLIN SODIUM [Concomitant]
     Indication: INFECTION PROPHYLAXIS
     Dosage: 1 G, 2X/DAY
     Route: 041
     Dates: start: 20120611, end: 20120613

REACTIONS (5)
  - ALANINE AMINOTRANSFERASE INCREASED [None]
  - BLOOD LACTATE DEHYDROGENASE INCREASED [None]
  - RHABDOMYOLYSIS [None]
  - BLOOD CREATINE PHOSPHOKINASE INCREASED [None]
  - ASPARTATE AMINOTRANSFERASE INCREASED [None]
